FAERS Safety Report 4426425-6 (Version None)
Quarter: 2004Q3

REPORT INFORMATION
  Report Type: 
  Country: None (occurrence: None)
  Receive Date: 20040811
  Receipt Date: 20040726
  Transmission Date: 20050211
  Serious: Yes (Hospitalization, Disabling, Other)
  Sender: FDA-Public Use
  Company Number: JP_040703760

PATIENT
  Age: 60 Year
  Sex: Male
  Weight: 47 kg

DRUGS (7)
  1. GEMZAR [Suspect]
     Indication: PANCREATIC CARCINOMA
     Dosage: 1200 MG OTHER
     Route: 050
     Dates: start: 20040622
  2. FOIPAN (CAMOSTAT MESILATE) [Concomitant]
  3. ZANTAC [Concomitant]
  4. URINORM (BENZBROMARONE) [Concomitant]
  5. BERIZYM [Concomitant]
  6. KADIAN [Concomitant]
  7. NASEA (RAMOSETRON HYDROCHLORIDE) [Concomitant]

REACTIONS (5)
  - APHASIA [None]
  - CEREBRAL INFARCTION [None]
  - MALIGNANT NEOPLASM PROGRESSION [None]
  - PANCREATIC CARCINOMA [None]
  - PYREXIA [None]
